FAERS Safety Report 7615798-9 (Version None)
Quarter: 2011Q3

REPORT INFORMATION
  Report Type: 
  Country: None (occurrence: None)
  Receive Date: 20110711
  Receipt Date: 20110624
  Transmission Date: 20111222
  Serious: Yes (Hospitalization)
  Sender: FDA-Public Use
  Company Number: 2011MA008023

PATIENT
  Age: 51 Year
  Sex: Female
  Weight: 57 kg

DRUGS (3)
  1. LIDOCAINE [Suspect]
     Indication: NERVE BLOCK
     Dosage: 20 MG/ML
  2. ROPIVACAINE HYDROCHLORIDE [Suspect]
     Indication: NERVE BLOCK
     Dosage: 7.5 MG/ML
  3. CARBAMAZEPINE [Suspect]
     Indication: TRIGEMINAL NEURALGIA
     Dosage: 200 MG;QAM

REACTIONS (12)
  - HEART RATE INCREASED [None]
  - NEUROTOXICITY [None]
  - RESPIRATORY RATE INCREASED [None]
  - TOXICITY TO VARIOUS AGENTS [None]
  - NO THERAPEUTIC RESPONSE [None]
  - HEART RATE DECREASED [None]
  - CONFUSIONAL STATE [None]
  - DYSKINESIA [None]
  - BLOOD PRESSURE SYSTOLIC INCREASED [None]
  - AGITATION [None]
  - UNRESPONSIVE TO STIMULI [None]
  - PO2 INCREASED [None]
